FAERS Safety Report 4609018-7 (Version None)
Quarter: 2005Q1

REPORT INFORMATION
  Report Type: 
  Country: None (occurrence: None)
  Receive Date: 20050311
  Receipt Date: 20050302
  Transmission Date: 20050727
  Serious: Yes (Other)
  Sender: FDA-Public Use
  Company Number: 2005024130

PATIENT
  Sex: Female

DRUGS (2)
  1. NEURONTIN [Suspect]
     Indication: ILL-DEFINED DISORDER
  2. GABAPENTIN [Suspect]
     Indication: ILL-DEFINED DISORDER
     Dosage: (600 MG)
     Dates: start: 20041201, end: 20050101

REACTIONS (10)
  - BACK PAIN [None]
  - BEDRIDDEN [None]
  - BREAST PAIN [None]
  - CHEST PAIN [None]
  - DRUG INEFFECTIVE [None]
  - NECK PAIN [None]
  - PAIN [None]
  - PAIN IN EXTREMITY [None]
  - PARAESTHESIA [None]
  - PHARMACEUTICAL PRODUCT COMPLAINT [None]
